FAERS Safety Report 11461866 (Version 1)
Quarter: 2015Q3

REPORT INFORMATION
  Report Type: Spontaneous
  Country: US (occurrence: US)
  Receive Date: 20150831
  Receipt Date: 20150831
  Transmission Date: 20151125
  Serious: No
  Sender: FDA-Public Use
  Company Number: US-ELI_LILLY_AND_COMPANY-US201009001630

PATIENT
  Age: 49 Year
  Sex: Male

DRUGS (3)
  1. AVODART /USA/ [Concomitant]
  2. CYMBALTA [Suspect]
     Active Substance: DULOXETINE HYDROCHLORIDE
     Indication: DEPRESSION
     Dosage: 90 MG, DAILY (1/D)
  3. PRISTIQ EXTENDED RELEASE [Concomitant]
     Active Substance: DESVENLAFAXINE SUCCINATE

REACTIONS (6)
  - Anxiety [Unknown]
  - Micturition urgency [Unknown]
  - Sensory disturbance [Unknown]
  - Headache [Unknown]
  - Drug ineffective [Unknown]
  - Panic attack [Unknown]
